FAERS Safety Report 17614048 (Version 2)
Quarter: 2020Q2

REPORT INFORMATION
  Report Type: Other
  Country: US (occurrence: US)
  Receive Date: 20200402
  Receipt Date: 20200428
  Transmission Date: 20200713
  Serious: Yes (Other)
  Sender: FDA-Public Use
  Company Number: US-INTERCEPT-PM2020000823

PATIENT
  Sex: Female

DRUGS (30)
  1. METOPROLOL TARTRATE. [Concomitant]
     Active Substance: METOPROLOL TARTRATE
  2. MOMETASONE [Concomitant]
     Active Substance: MOMETASONE
  3. RESTASIS [Concomitant]
     Active Substance: CYCLOSPORINE
  4. TIZANIDINE. [Concomitant]
     Active Substance: TIZANIDINE
  5. LUMIGAN [Concomitant]
     Active Substance: BIMATOPROST
  6. CETIRIZINE [Concomitant]
     Active Substance: CETIRIZINE HYDROCHLORIDE
  7. FLUTICASONE. [Concomitant]
     Active Substance: FLUTICASONE
  8. HUMALOG KWIK [Concomitant]
  9. OMEPRAZOLE. [Concomitant]
     Active Substance: OMEPRAZOLE
  10. DOCUSATE [Concomitant]
     Active Substance: DOCUSATE
  11. DIAZEPAM. [Concomitant]
     Active Substance: DIAZEPAM
  12. GABAPENTIN. [Concomitant]
     Active Substance: GABAPENTIN
  13. METHYLPRED [Concomitant]
     Active Substance: METHYLPREDNISOLONE
  14. TRAMADOL HCL [Concomitant]
     Active Substance: TRAMADOL HYDROCHLORIDE
  15. URSODIOL. [Concomitant]
     Active Substance: URSODIOL
  16. AMLODIPINE W/OLMESARTAN [Concomitant]
     Active Substance: AMLODIPINE MALEATE\OLMESARTAN MEDOXOMIL
  17. ATORVASTATIN [Concomitant]
     Active Substance: ATORVASTATIN
  18. HYDRALAZINE [Concomitant]
     Active Substance: HYDRALAZINE HYDROCHLORIDE
  19. TOPIRAMATE. [Concomitant]
     Active Substance: TOPIRAMATE
  20. COLACE [Concomitant]
     Active Substance: DOCUSATE SODIUM
  21. ONDANSETRON [Concomitant]
     Active Substance: ONDANSETRON
  22. OCALIVA [Suspect]
     Active Substance: OBETICHOLIC ACID
     Indication: PRIMARY BILIARY CHOLANGITIS
     Dosage: 5 MG, QD
     Route: 048
     Dates: start: 20190607
  23. COMBIGAN [Concomitant]
     Active Substance: BRIMONIDINE TARTRATE\TIMOLOL MALEATE
  24. HYDROCHLOROTH [Concomitant]
     Active Substance: HYDROCHLOROTHIAZIDE
  25. LEVEMIR [Concomitant]
     Active Substance: INSULIN DETEMIR
  26. PREDNISONE. [Concomitant]
     Active Substance: PREDNISONE
  27. PRIMIDONE. [Concomitant]
     Active Substance: PRIMIDONE
  28. LIDOCAINE/PRILOCAINE [Concomitant]
     Active Substance: LIDOCAINE\PRILOCAINE
  29. PROMETHAZINE [Concomitant]
     Active Substance: PROMETHAZINE HYDROCHLORIDE
  30. CYCLOBENZAPRIN [Concomitant]
     Active Substance: CYCLOBENZAPRINE

REACTIONS (3)
  - Breast cancer [Unknown]
  - Neoplasm malignant [Unknown]
  - Hypersensitivity [Unknown]
